FAERS Safety Report 24405639 (Version 1)
Quarter: 2024Q4

REPORT INFORMATION
  Report Type: Report from Study
  Country: US (occurrence: US)
  Receive Date: 20241007
  Receipt Date: 20241007
  Transmission Date: 20250115
  Serious: Yes (Death, Other)
  Sender: NOVARTIS
  Company Number: US-002147023-NVSC2024US196953

PATIENT
  Sex: Male

DRUGS (1)
  1. TABRECTA [Suspect]
     Active Substance: CAPMATINIB
     Indication: Product used for unknown indication
     Dosage: 200 MG, OTHER
     Route: 065

REACTIONS (1)
  - Death [Fatal]
